FAERS Safety Report 25648814 (Version 1)
Quarter: 2025Q3

REPORT INFORMATION
  Report Type: Report from Study
  Country: US (occurrence: US)
  Receive Date: 20250806
  Receipt Date: 20250806
  Transmission Date: 20251021
  Serious: Yes (Other)
  Sender: ABBVIE
  Company Number: US-ABBVIE-6398931

PATIENT
  Age: 66 Year
  Sex: Male

DRUGS (2)
  1. IMBRUVICA [Suspect]
     Active Substance: IBRUTINIB
     Indication: Chronic lymphocytic leukaemia
     Route: 048
  2. VENCLEXTA [Suspect]
     Active Substance: VENETOCLAX
     Indication: Chronic lymphocytic leukaemia
     Dosage: 4 TABLETS OF 100 MILLIGRAM AT ONCE A DAY
     Route: 048
     Dates: start: 20250630

REACTIONS (10)
  - Skin cancer [Unknown]
  - Pain [Not Recovered/Not Resolved]
  - Faeces hard [Unknown]
  - Flatulence [Unknown]
  - Dyspepsia [Unknown]
  - Gout [Unknown]
  - Adverse food reaction [Unknown]
  - Drug ineffective [Unknown]
  - Hypertension [Unknown]
  - Unevaluable event [Unknown]
